FAERS Safety Report 17527883 (Version 15)
Quarter: 2021Q4

REPORT INFORMATION
  Report Type: Other
  Country: CA (occurrence: None)
  Receive Date: 20200311
  Receipt Date: 20211030
  Transmission Date: 20220304
  Serious: No
  Sender: FDA-Public Use
  Company Number: CA-ROCHE-2557148

PATIENT
  Age: 44 Year
  Sex: Female
  Weight: 82.7 kg

DRUGS (10)
  1. OCREVUS [Suspect]
     Active Substance: OCRELIZUMAB
     Indication: Relapsing-remitting multiple sclerosis
     Dosage: 300 MG AT DAY 0 AND 14, THEN 600 MG EVERY 6 MONTH
     Route: 042
     Dates: start: 20200218
  2. BENADRYL [Suspect]
     Active Substance: DIPHENHYDRAMINE HYDROCHLORIDE
     Indication: Product used for unknown indication
     Route: 042
  3. AMANTADINE [Concomitant]
     Active Substance: AMANTADINE
  4. VESICARE [Concomitant]
     Active Substance: SOLIFENACIN SUCCINATE
  5. VIMOVO [Concomitant]
     Active Substance: ESOMEPRAZOLE MAGNESIUM\NAPROXEN
  6. SHINGRIX [Concomitant]
     Active Substance: RECOMBINANT VARICELLA ZOSTER VIRUS (VZV) GLYCOPROTEIN E
  7. VESICARE [Concomitant]
     Active Substance: SOLIFENACIN SUCCINATE
  8. SODIUM CHLORIDE [Concomitant]
     Active Substance: SODIUM CHLORIDE
  9. ADVIL [Concomitant]
     Active Substance: IBUPROFEN
  10. CORTISONE [Concomitant]
     Active Substance: CORTISONE

REACTIONS (16)
  - Infusion related reaction [Recovered/Resolved]
  - Oral herpes [Not Recovered/Not Resolved]
  - Fatigue [Unknown]
  - Nasopharyngitis [Not Recovered/Not Resolved]
  - Dizziness [Not Recovered/Not Resolved]
  - Infusion related reaction [Recovered/Resolved]
  - Cough [Not Recovered/Not Resolved]
  - Headache [Unknown]
  - Nasal congestion [Not Recovered/Not Resolved]
  - Sinusitis [Not Recovered/Not Resolved]
  - Feeling abnormal [Unknown]
  - Loss of personal independence in daily activities [Unknown]
  - Asthenia [Not Recovered/Not Resolved]
  - Upper respiratory tract infection [Not Recovered/Not Resolved]
  - Infusion related reaction [Recovered/Resolved]
  - Somnolence [Unknown]

NARRATIVE: CASE EVENT DATE: 20200218
